FAERS Safety Report 4284376-4 (Version None)
Quarter: 2004Q1

REPORT INFORMATION
  Report Type: 
  Country: None (occurrence: None)
  Receive Date: 20040130
  Receipt Date: 20040114
  Transmission Date: 20041129
  Serious: Yes (Hospitalization)
  Sender: FDA-Public Use
  Company Number: USA040156450

PATIENT
  Age: 8 Year
  Sex: Male
  Weight: 16 kg

DRUGS (3)
  1. ZYPREXA [Suspect]
     Indication: AFFECTIVE DISORDER
     Dosage: 1.25 MG/IN THE EVENING
     Dates: start: 20040102, end: 20040110
  2. ZYPREXA [Suspect]
     Indication: AGGRESSION
     Dosage: 1.25 MG/IN THE EVENING
     Dates: start: 20040102, end: 20040110
  3. ZOLOFT [Concomitant]

REACTIONS (13)
  - ABDOMINAL PAIN UPPER [None]
  - APNOEA [None]
  - BLOOD PRESSURE DECREASED [None]
  - FEELING ABNORMAL [None]
  - FEELING COLD [None]
  - GRAND MAL CONVULSION [None]
  - INFLUENZA [None]
  - MOVEMENT DISORDER [None]
  - PYREXIA [None]
  - RESPIRATION ABNORMAL [None]
  - RESPIRATORY RATE DECREASED [None]
  - TACHYCARDIA [None]
  - TREMOR [None]
